FAERS Safety Report 9461994 (Version 1)
Quarter: 2013Q3

REPORT INFORMATION
  Report Type: Spontaneous
  Country: CN (occurrence: CN)
  Receive Date: 20130816
  Receipt Date: 20130816
  Transmission Date: 20140515
  Serious: Yes (Other)
  Sender: FDA-Public Use
  Company Number: CN-BAYER-2013-097534

PATIENT
  Age: 69 Year
  Sex: Female

DRUGS (12)
  1. ACETYLSALICYLIC ACID({=100 MG) [Suspect]
     Indication: ANTIPLATELET THERAPY
     Dosage: 100 MG, QD
     Route: 048
  2. CLOPIDOGREL [Interacting]
     Indication: ANTIPLATELET THERAPY
     Dosage: 75 MG, QD
     Route: 048
  3. ATORVASTATIN CALCIUM [Concomitant]
     Indication: HYPERLIPIDAEMIA
     Dosage: 20 MG, QD
     Route: 048
  4. DIGOXIN [Concomitant]
     Dosage: 0.125 MG, QD
     Route: 048
  5. LACIDIPINE [Concomitant]
     Indication: HYPERTENSION
     Dosage: 4 MG, QD
     Route: 048
  6. METOPROLOL SUCCINATE [Concomitant]
     Indication: HYPERTENSION
     Dosage: 23.75 MG, QD
     Route: 048
  7. ISOSORBIDEMONONITRAAT CF [Concomitant]
     Dosage: 50 MG, QD
     Route: 048
  8. BENAZEPRIL HYDROCHLORIDE [Concomitant]
     Indication: HYPERTENSION
     Dosage: 10 MG, BID
     Route: 048
  9. ACARBOSE [Concomitant]
     Indication: DIABETES MELLITUS
     Dosage: 50 MG, TID
     Route: 048
  10. LEVOFLOXACIN [Concomitant]
     Dosage: 300 MG, BID
     Route: 041
  11. FUROSEMIDE [Concomitant]
     Indication: HYPERTENSION
  12. SPIRONOLACTONE [Concomitant]
     Indication: HYPERTENSION

REACTIONS (3)
  - Agranulocytosis [Recovered/Resolved]
  - Cerebral infarction [None]
  - Labelled drug-drug interaction medication error [None]
